FAERS Safety Report 13652782 (Version 1)
Quarter: 2017Q2

REPORT INFORMATION
  Report Type: Spontaneous
  Country: US (occurrence: US)
  Receive Date: 20170614
  Receipt Date: 20170614
  Transmission Date: 20170830
  Serious: Yes (Hospitalization)
  Sender: FDA-Public Use
  Company Number: US-ROCHE-687273

PATIENT
  Age: 47 Year
  Sex: Male
  Weight: 81.6 kg

DRUGS (2)
  1. XELODA [Suspect]
     Active Substance: CAPECITABINE
     Indication: COLORECTAL CANCER STAGE III
     Dosage: OTHER INDICATION: ADJUVANT RECTAL CANCER, FREQUENCY: DAILY 14 DAYS ON AND 7 DAYS OFF
     Route: 048
  2. XELODA [Suspect]
     Active Substance: CAPECITABINE
     Dosage: FREQUENCY: 5 DAYS ON AND 2 DAYS OFF
     Route: 048

REACTIONS (3)
  - Chest pain [Recovered/Resolved]
  - Headache [Unknown]
  - Fatigue [Unknown]

NARRATIVE: CASE EVENT DATE: 20100110
